FAERS Safety Report 24059847 (Version 7)
Quarter: 2025Q1

REPORT INFORMATION
  Report Type: Report from Study
  Country: CA (occurrence: CA)
  Receive Date: 20240708
  Receipt Date: 20250113
  Transmission Date: 20250408
  Serious: Yes (Hospitalization, Other)
  Sender: BIOCON
  Company Number: CA-MYLANLABS-2022M1087082

PATIENT

DRUGS (11)
  1. OGIVRI [Suspect]
     Active Substance: TRASTUZUMAB-DKST
     Indication: Breast cancer metastatic
     Dosage: 480 MILLIGRAM, Q3W, (480 MG EVERY 3 WEEKS)
     Route: 042
     Dates: start: 20220428
  2. OGIVRI [Suspect]
     Active Substance: TRASTUZUMAB-DKST
     Dosage: 504 MILLIGRAM, EVERY 3 WEEKS
     Route: 042
     Dates: start: 20220428
  3. OGIVRI [Suspect]
     Active Substance: TRASTUZUMAB-DKST
     Dosage: 510 MILLIGRAM, Q3W (510 MG EVERY 3 WEEKS)
     Route: 042
     Dates: start: 20220428
  4. OGIVRI [Suspect]
     Active Substance: TRASTUZUMAB-DKST
     Route: 065
     Dates: start: 20230621
  5. OGIVRI [Suspect]
     Active Substance: TRASTUZUMAB-DKST
     Route: 065
     Dates: start: 20230707
  6. OGIVRI [Suspect]
     Active Substance: TRASTUZUMAB-DKST
     Dosage: 6 MG/KG, EVERY 3 WEEKS
     Route: 042
     Dates: start: 20220428
  7. OGIVRI [Suspect]
     Active Substance: TRASTUZUMAB-DKST
     Dosage: 6 MG/KG, Q3W
     Route: 042
     Dates: start: 20220428
  8. OGIVRI [Suspect]
     Active Substance: TRASTUZUMAB-DKST
     Dosage: 6 MG/KG, Q3W
     Route: 042
     Dates: start: 20220428
  9. OGIVRI [Suspect]
     Active Substance: TRASTUZUMAB-DKST
     Dosage: 6 MILLIGRAM/KILOGRAM, Q3W
     Route: 042
     Dates: start: 20220428
  10. OGIVRI [Suspect]
     Active Substance: TRASTUZUMAB-DKST
     Dosage: 6 MG/KG, Q3W
     Route: 042
     Dates: start: 20220428
  11. CAPECITABINE [Suspect]
     Active Substance: CAPECITABINE
     Indication: Product used for unknown indication
     Route: 065

REACTIONS (11)
  - Acute promyelocytic leukaemia [Recovering/Resolving]
  - Dry skin [Unknown]
  - Weight increased [Unknown]
  - Skin fissures [Unknown]
  - Malaise [Unknown]
  - Weight decreased [Unknown]
  - Pain in extremity [Unknown]
  - Heart rate increased [Unknown]
  - Oxygen saturation decreased [Unknown]
  - Inappropriate schedule of product administration [Unknown]
  - Off label use [Unknown]

NARRATIVE: CASE EVENT DATE: 20240501
